FAERS Safety Report 4830785-1 (Version None)
Quarter: 2005Q4

REPORT INFORMATION
  Report Type: 
  Country: None (occurrence: None)
  Receive Date: 20051117
  Receipt Date: 20051109
  Transmission Date: 20060501
  Serious: Yes (Hospitalization)
  Sender: FDA-Public Use
  Company Number: US-MERCK-0511USA01532

PATIENT
  Age: 47 Year
  Sex: Female

DRUGS (3)
  1. VIOXX [Suspect]
     Indication: CARDIAC DISORDER
     Route: 048
     Dates: start: 20010101, end: 20030101
  2. ZOCOR [Concomitant]
     Route: 048
  3. ATENOLOL [Concomitant]
     Route: 065

REACTIONS (1)
  - MYOCARDIAL INFARCTION [None]
